FAERS Safety Report 13664630 (Version 2)
Quarter: 2017Q2

REPORT INFORMATION
  Report Type: Spontaneous
  Country: US (occurrence: US)
  Receive Date: 20170619
  Receipt Date: 20170623
  Transmission Date: 20170830
  Serious: Yes (Hospitalization, Other)
  Sender: FDA-Public Use
  Company Number: US-GLAXOSMITHKLINE-US2017093111

PATIENT
  Sex: Female

DRUGS (17)
  1. OXYCODONE [Concomitant]
     Active Substance: OXYCODONE
  2. VITAMIN C [Concomitant]
     Active Substance: ASCORBIC ACID
  3. SERTRALINE [Concomitant]
     Active Substance: SERTRALINE HYDROCHLORIDE
  4. KEPPRA [Concomitant]
     Active Substance: LEVETIRACETAM
  5. NEXIUM [Concomitant]
     Active Substance: ESOMEPRAZOLE MAGNESIUM
  6. GLUCOSAMINE [Concomitant]
     Active Substance: GLUCOSAMINE
  7. LEVOTHYROXINE. [Concomitant]
     Active Substance: LEVOTHYROXINE
  8. OSPHENA [Concomitant]
     Active Substance: OSPEMIFENE
  9. WARFARIN [Suspect]
     Active Substance: WARFARIN
     Indication: PRODUCT USED FOR UNKNOWN INDICATION
  10. BENLYSTA [Suspect]
     Active Substance: BELIMUMAB
     Indication: PRODUCT USED FOR UNKNOWN INDICATION
     Dosage: UNK
     Route: 042
     Dates: start: 2012
  11. DULOXETINE. [Concomitant]
     Active Substance: DULOXETINE
  12. TOPIRAMATE. [Concomitant]
     Active Substance: TOPIRAMATE
  13. GABAPENTIN. [Concomitant]
     Active Substance: GABAPENTIN
  14. CHONDROITIN [Concomitant]
     Active Substance: CHONDROITIN
  15. LORATADINE. [Concomitant]
     Active Substance: LORATADINE
  16. ATORVASTATIN [Concomitant]
     Active Substance: ATORVASTATIN
  17. REGLAN [Concomitant]
     Active Substance: METOCLOPRAMIDE HYDROCHLORIDE

REACTIONS (10)
  - Drug ineffective [Unknown]
  - Speech disorder [Unknown]
  - Malaise [Unknown]
  - Fibromyalgia [Unknown]
  - Asthenia [Unknown]
  - Fatigue [Unknown]
  - Cerebrovascular accident [Unknown]
  - Drug effect decreased [Unknown]
  - Cardiac pacemaker insertion [Unknown]
  - Pain [Unknown]

NARRATIVE: CASE EVENT DATE: 2015
